FAERS Safety Report 8858744 (Version 1)
Quarter: 2012Q4

REPORT INFORMATION
  Report Type: Spontaneous
  Country: US (occurrence: None)
  Receive Date: 20121023
  Receipt Date: 20121023
  Transmission Date: 20130627
  Serious: Yes (Hospitalization)
  Sender: FDA-Public Use
  Company Number: None

PATIENT
  Age: 23 Year
  Sex: Female
  Weight: 65.32 kg

DRUGS (1)
  1. MIRENA [Suspect]
     Indication: CONTRACEPTION
     Dates: start: 20100619, end: 20100820

REACTIONS (4)
  - Uterine cervical pain [None]
  - Uterine perforation [None]
  - Pregnancy on oral contraceptive [None]
  - Uterine disorder [None]
